FAERS Safety Report 9299017 (Version 4)
Quarter: 2013Q2

REPORT INFORMATION
  Report Type: Spontaneous
  Country: US (occurrence: US)
  Receive Date: 20130520
  Receipt Date: 20130611
  Transmission Date: 20140414
  Serious: No
  Sender: FDA-Public Use
  Company Number: US-009507513-1305USA005177

PATIENT
  Age: 69 Year
  Sex: Female

DRUGS (4)
  1. DULERA [Suspect]
     Indication: CHRONIC OBSTRUCTIVE PULMONARY DISEASE
     Dosage: 200MCG/5MCG, 2PUFFS TWICE A DAY
     Route: 055
  2. DULERA [Suspect]
     Indication: EMPHYSEMA
  3. VENTOLIN (ALBUTEROL) [Concomitant]
  4. SPIRIVA [Concomitant]

REACTIONS (5)
  - Chest discomfort [Recovered/Resolved]
  - Dyspnoea [Recovered/Resolved]
  - Chest pain [Recovered/Resolved]
  - Drug dose omission [Unknown]
  - Product quality issue [Unknown]
